FAERS Safety Report 20618180 (Version 1)
Quarter: 2022Q1

REPORT INFORMATION
  Report Type: Spontaneous
  Country: US (occurrence: US)
  Receive Date: 20220321
  Receipt Date: 20220321
  Transmission Date: 20220423
  Serious: Yes (Other)
  Sender: FDA-Public Use
  Company Number: US-TEVA-2022-US-2019337

PATIENT
  Age: 56 Year
  Sex: Female

DRUGS (1)
  1. QVAR REDIHALER [Suspect]
     Active Substance: BECLOMETHASONE DIPROPIONATE
     Route: 065

REACTIONS (8)
  - Pneumonia [Unknown]
  - Lyme disease [Unknown]
  - Asthma [Unknown]
  - Nasopharyngitis [Unknown]
  - Illness [Unknown]
  - Dyspnoea [Unknown]
  - Expired product administered [Unknown]
  - Device delivery system issue [Unknown]

NARRATIVE: CASE EVENT DATE: 20220308
